FAERS Safety Report 22039013 (Version 1)
Quarter: 2023Q1

REPORT INFORMATION
  Report Type: Spontaneous
  Country: None (occurrence: DE)
  Receive Date: 20230227
  Receipt Date: 20230227
  Transmission Date: 20230417
  Serious: Yes (Other)
  Sender: FDA-Public Use
  Company Number: DE-Hisun Pharmaceuticals-2138467

PATIENT
  Age: 53 Year
  Sex: Female

DRUGS (3)
  1. DAUNORUBICIN HYDROCHLORIDE [Suspect]
     Active Substance: DAUNORUBICIN HYDROCHLORIDE
     Indication: Acute myeloid leukaemia
  2. CYTARABINE [Suspect]
     Active Substance: CYTARABINE
  3. GEMTUZUMAB OZOGAMICIN [Suspect]
     Active Substance: GEMTUZUMAB OZOGAMICIN

REACTIONS (4)
  - Pneumonia fungal [Unknown]
  - Cerebral fungal infection [Unknown]
  - Cytopenia [Unknown]
  - Leukopenia [Unknown]
